FAERS Safety Report 18597480 (Version 3)
Quarter: 2023Q2

REPORT INFORMATION
  Report Type: Spontaneous
  Country: HU (occurrence: HU)
  Receive Date: 20201209
  Receipt Date: 20230527
  Transmission Date: 20230721
  Serious: Yes (Life-Threatening, Hospitalization, Other)
  Sender: FDA-Public Use
  Company Number: HU-002147023-NVSC2020HU314666

PATIENT
  Age: 59 Year
  Sex: Female

DRUGS (10)
  1. DOXAZOSIN [Interacting]
     Active Substance: DOXAZOSIN MESYLATE
     Indication: Hypertension
     Dosage: UNK
     Route: 065
  2. CARVEDILOL [Interacting]
     Active Substance: CARVEDILOL
     Indication: Hypertension
     Dosage: 25 MG, 2X/DAY
     Route: 065
     Dates: start: 202005
  3. EVEROLIMUS [Interacting]
     Active Substance: EVEROLIMUS
     Indication: Prophylaxis against transplant rejection
     Dosage: 1.75 MG, 1X/DAY
     Route: 065
     Dates: start: 202005
  4. EVEROLIMUS [Interacting]
     Active Substance: EVEROLIMUS
     Dosage: 0.75 MG, 1X/DAY
     Route: 065
     Dates: start: 202005
  5. ALLOPURINOL [Interacting]
     Active Substance: ALLOPURINOL
     Indication: Product used for unknown indication
     Dosage: UNK
     Route: 065
  6. TACROLIMUS [Interacting]
     Active Substance: TACROLIMUS
     Indication: Prophylaxis against transplant rejection
     Dosage: 9 MG, 1X/DAY, (LONG-ACTING FORMULATION)
     Route: 048
     Dates: start: 2020
  7. TACROLIMUS [Interacting]
     Active Substance: TACROLIMUS
     Indication: Heart transplant
     Dosage: 0.5 MG, 1X/DAY, (LONG-ACTING FORMULATION)
     Route: 048
     Dates: start: 202005, end: 202005
  8. METOPROLOL [Interacting]
     Active Substance: METOPROLOL
     Indication: Product used for unknown indication
     Dosage: UNK
     Route: 065
     Dates: start: 2020
  9. GUANFACINE [Concomitant]
     Active Substance: GUANFACINE
     Indication: Hypertension
     Dosage: UNK
     Route: 065
  10. INDAPAMIDE [Concomitant]
     Active Substance: INDAPAMIDE
     Indication: Hypertension
     Dosage: UNK
     Route: 005

REACTIONS (21)
  - Myocardial infarction [Unknown]
  - Blood pressure increased [Unknown]
  - Off label use [Unknown]
  - Anaemia [Unknown]
  - Urinary tract infection [Unknown]
  - Drug interaction [Unknown]
  - Drug level increased [Recovered/Resolved]
  - Renal impairment [Unknown]
  - Electrocardiogram ST-T segment abnormal [Unknown]
  - Cardiac aneurysm [Unknown]
  - Glomerular filtration rate decreased [Unknown]
  - Cardiac failure [Unknown]
  - Transplant rejection [Unknown]
  - Renal failure [Not Recovered/Not Resolved]
  - Renal disorder [Unknown]
  - Blood urea increased [Unknown]
  - Cardiac disorder [Unknown]
  - Hypertension [Unknown]
  - Blood uric acid increased [Unknown]
  - Drug level above therapeutic [Unknown]
  - Immunosuppressant drug level increased [Recovered/Resolved]

NARRATIVE: CASE EVENT DATE: 20200101
